FAERS Safety Report 6476078-0 (Version None)
Quarter: 2009Q4

REPORT INFORMATION
  Report Type: 
  Country: None (occurrence: None)
  Receive Date: 20091204
  Receipt Date: 20091119
  Transmission Date: 20100525
  Serious: Yes (Other)
  Sender: FDA-Public Use
  Company Number: CA-GENENTECH-288063

PATIENT
  Sex: Female
  Weight: 61.7 kg

DRUGS (7)
  1. OMALIZUMAB [Suspect]
     Indication: ASTHMA
     Dosage: 300 MG, 1/MONTH
     Route: 058
     Dates: start: 20080107
  2. OMALIZUMAB [Suspect]
     Dosage: 150 MG, 1/MONTH
     Route: 058
     Dates: start: 20080107
  3. OMALIZUMAB [Suspect]
     Dosage: 150 MG, 1/MONTH
     Route: 058
     Dates: start: 20091119
  4. ADVAIR DISKUS 100/50 [Concomitant]
     Indication: DRUG USE FOR UNKNOWN INDICATION
  5. VENTOLIN [Concomitant]
     Indication: DRUG USE FOR UNKNOWN INDICATION
  6. ALVESCO [Concomitant]
     Indication: DRUG USE FOR UNKNOWN INDICATION
  7. REACTINE [Concomitant]
     Indication: DRUG USE FOR UNKNOWN INDICATION

REACTIONS (3)
  - BRONCHITIS [None]
  - HAEMOPTYSIS [None]
  - PAIN [None]
